FAERS Safety Report 18789125 (Version 1)
Quarter: 2021Q1

REPORT INFORMATION
  Report Type: Spontaneous
  Country: US (occurrence: US)
  Receive Date: 20210126
  Receipt Date: 20210126
  Transmission Date: 20210419
  Serious: Yes (Hospitalization)
  Sender: FDA-Public Use
  Company Number: None

PATIENT
  Age: 56 Year
  Sex: Female

DRUGS (13)
  1. B12?ACTIVE [Concomitant]
  2. SYNAREL [Concomitant]
     Active Substance: NAFARELIN ACETATE
  3. ARGININE [Concomitant]
     Active Substance: ARGININE
  4. FLUOCINONIDE. [Concomitant]
     Active Substance: FLUOCINONIDE
  5. TRIAMCINOLON [Concomitant]
  6. LUPRON [Suspect]
     Active Substance: LEUPROLIDE ACETATE
     Indication: ENDOMETRIOSIS
     Dosage: ?          OTHER FREQUENCY:EVERY MONTH;?
     Route: 030
     Dates: start: 20171019
  7. DESOXIMETAS [Concomitant]
  8. GARLIC. [Concomitant]
     Active Substance: GARLIC
  9. HYDROCORTISO [Concomitant]
  10. TOBRADEX ST SUS [Concomitant]
  11. FENTANYL. [Concomitant]
     Active Substance: FENTANYL
  12. GINGER. [Concomitant]
     Active Substance: GINGER
  13. SCOPOLAMINE [Concomitant]
     Active Substance: SCOPOLAMINE

REACTIONS (2)
  - Gastrointestinal infection [None]
  - Feeling abnormal [None]

NARRATIVE: CASE EVENT DATE: 20210111
